FAERS Safety Report 9883338 (Version 2)
Quarter: 2014Q1

REPORT INFORMATION
  Report Type: Spontaneous
  Country: BE (occurrence: BE)
  Receive Date: 20140210
  Receipt Date: 20140319
  Transmission Date: 20141002
  Serious: Yes (Hospitalization)
  Sender: FDA-Public Use
  Company Number: BE-ROCHE-1345570

PATIENT
  Age: 77 Year
  Sex: Female

DRUGS (2)
  1. LUCENTIS [Suspect]
     Indication: AGE-RELATED MACULAR DEGENERATION
     Route: 042
     Dates: start: 20140127
  2. LYSOMUCIL [Concomitant]
     Indication: COUGH

REACTIONS (4)
  - Lung neoplasm malignant [Not Recovered/Not Resolved]
  - Paraneoplastic syndrome [Unknown]
  - Renal cancer [Unknown]
  - Metastases to lung [Unknown]
